FAERS Safety Report 18252046 (Version 4)
Quarter: 2020Q4

REPORT INFORMATION
  Report Type: Spontaneous
  Country: US (occurrence: US)
  Receive Date: 20200910
  Receipt Date: 20201109
  Transmission Date: 20210113
  Serious: No
  Sender: FDA-Public Use
  Company Number: US-SA-2020SA242080

PATIENT

DRUGS (1)
  1. LANTUS SOLOSTAR [Suspect]
     Active Substance: INSULIN GLARGINE
     Indication: TYPE 2 DIABETES MELLITUS
     Dosage: 35 IU, QD
     Route: 065

REACTIONS (6)
  - Arthritis [Unknown]
  - Insomnia [Unknown]
  - Blood glucose increased [Unknown]
  - Product dose omission in error [Unknown]
  - Urine abnormality [Unknown]
  - Wrong technique in device usage process [Unknown]
